FAERS Safety Report 24338449 (Version 4)
Quarter: 2024Q3

REPORT INFORMATION
  Report Type: Spontaneous
  Country: DE (occurrence: DE)
  Receive Date: 20240919
  Receipt Date: 20240930
  Transmission Date: 20241017
  Serious: Yes (Other)
  Sender: TORRENT
  Company Number: None

PATIENT
  Age: 71 Year
  Sex: Male
  Weight: 76 kg

DRUGS (7)
  1. OMEPRAZOLE [Suspect]
     Active Substance: OMEPRAZOLE
     Indication: Gastrooesophageal reflux disease
     Dosage: 20 MG
     Route: 048
     Dates: start: 20240328
  2. PANTOPRAZOLE [Suspect]
     Active Substance: PANTOPRAZOLE
     Indication: Gastrooesophageal reflux disease
     Dosage: UNKNOWN
     Route: 065
  3. PANTOPRAZOLE SODIUM [Suspect]
     Active Substance: PANTOPRAZOLE SODIUM
     Indication: Hiatus hernia
     Route: 065
     Dates: start: 20240709
  4. ESOMEPRAZOLE [Suspect]
     Active Substance: ESOMEPRAZOLE
     Indication: Hiatus hernia
     Route: 065
     Dates: start: 20240507
  5. Amlo-Valsacor [Concomitant]
     Indication: Product used for unknown indication
     Dosage: 5MG/160MG, TAKING FOR SEVERAL YEARS
     Route: 065
  6. ASPIRIN [Concomitant]
     Active Substance: ASPIRIN
     Indication: Product used for unknown indication
     Dosage: TAKING FOR SEVERAL YEARS
     Route: 065
  7. SIMVASTATIN [Concomitant]
     Active Substance: SIMVASTATIN
     Indication: Product used for unknown indication
     Dosage: TAKING FOR SEVERAL YEARS
     Route: 065

REACTIONS (3)
  - Arrhythmia [Not Recovered/Not Resolved]
  - Extrasystoles [Not Recovered/Not Resolved]
  - Heart rate decreased [Not Recovered/Not Resolved]

NARRATIVE: CASE EVENT DATE: 20240328
